FAERS Safety Report 4314482-7 (Version None)
Quarter: 2004Q1

REPORT INFORMATION
  Report Type: 
  Country: None (occurrence: None)
  Receive Date: 20040309
  Receipt Date: 20040204
  Transmission Date: 20041129
  Serious: Yes (Hospitalization, Disabling)
  Sender: FDA-Public Use
  Company Number: PHRM2004FR00764

PATIENT
  Age: 43 Year
  Sex: Male

DRUGS (1)
  1. ESIDRIX [Suspect]
     Route: 048
     Dates: start: 20030615, end: 20031218

REACTIONS (8)
  - AMPUTATION [None]
  - ARTERIAL THROMBOSIS [None]
  - EMBOLECTOMY [None]
  - INFLAMMATION [None]
  - MICROCYTIC ANAEMIA [None]
  - PERIPHERAL ISCHAEMIA [None]
  - PULMONARY EMBOLISM [None]
  - THROMBOCYTHAEMIA [None]
